FAERS Safety Report 16101463 (Version 1)
Quarter: 2019Q1

REPORT INFORMATION
  Report Type: Spontaneous
  Country: US (occurrence: US)
  Receive Date: 20190321
  Receipt Date: 20190321
  Transmission Date: 20190418
  Serious: No
  Sender: FDA-Public Use
  Company Number: US-ADAMAS PHARMA, LLC-2019ADA00412

PATIENT
  Age: 64 Year
  Sex: Female

DRUGS (6)
  1. GOCOVRI [Suspect]
     Active Substance: AMANTADINE
     Indication: DYSKINESIA
     Dosage: 137 MG, 1X/DAY, AT NIGHT
     Route: 048
     Dates: start: 20190205, end: 20190211
  2. PAXIL [Concomitant]
     Active Substance: PAROXETINE HYDROCHLORIDE
  3. GOCOVRI [Suspect]
     Active Substance: AMANTADINE
     Dosage: 274 MG, 1X/DAY, AT NIGHT
     Route: 048
     Dates: start: 20190212
  4. CARB/LEVO [Concomitant]
     Active Substance: CARBIDOPA\LEVODOPA
  5. BUPROPION. [Concomitant]
     Active Substance: BUPROPION
  6. KLONOPIN [Concomitant]
     Active Substance: CLONAZEPAM

REACTIONS (2)
  - Insomnia [Not Recovered/Not Resolved]
  - Dry mouth [Recovered/Resolved]

NARRATIVE: CASE EVENT DATE: 201902
